FAERS Safety Report 25912981 (Version 1)
Quarter: 2025Q4

REPORT INFORMATION
  Report Type: Spontaneous
  Country: EU (occurrence: EU)
  Receive Date: 20251013
  Receipt Date: 20251013
  Transmission Date: 20260117
  Serious: Yes (Hospitalization)
  Sender: SANOFI AVENTIS
  Company Number: EU-PEI-202500021055

PATIENT
  Age: 29 Year
  Sex: Male
  Weight: 70 kg

DRUGS (3)
  1. EFANESOCTOCOG ALFA [Suspect]
     Active Substance: EFANESOCTOCOG ALFA
     Indication: Haemorrhage
     Dosage: 1 DF
     Route: 065
     Dates: start: 20250808, end: 20250808
  2. EFANESOCTOCOG ALFA [Suspect]
     Active Substance: EFANESOCTOCOG ALFA
     Dosage: 1X 3000 IE
     Route: 065
     Dates: start: 20250903, end: 20250903
  3. EFANESOCTOCOG ALFA [Suspect]
     Active Substance: EFANESOCTOCOG ALFA
     Dosage: 1X 3000 IE
     Route: 065
     Dates: start: 20250908, end: 20250908

REACTIONS (1)
  - Anti factor VIII antibody positive [Unknown]

NARRATIVE: CASE EVENT DATE: 20250909
